FAERS Safety Report 4474918-8 (Version None)
Quarter: 2004Q4

REPORT INFORMATION
  Report Type: 
  Country: None (occurrence: None)
  Receive Date: 20041014
  Receipt Date: 20041005
  Transmission Date: 20050328
  Serious: Yes (Other)
  Sender: FDA-Public Use
  Company Number: BR-MERCK-0410BRA00232

PATIENT
  Age: 32 Year
  Sex: Female

DRUGS (2)
  1. VIOXX [Suspect]
     Indication: HEADACHE
     Route: 048
     Dates: start: 20020101
  2. VIOXX [Suspect]
     Indication: PAIN
     Route: 048
     Dates: start: 20020101

REACTIONS (5)
  - FACIAL PALSY [None]
  - HEADACHE [None]
  - HYPERTENSIVE CRISIS [None]
  - NECK PAIN [None]
  - PALPITATIONS [None]
